FAERS Safety Report 24366456 (Version 1)
Quarter: 2024Q3

REPORT INFORMATION
  Report Type: Spontaneous
  Country: FR (occurrence: FR)
  Receive Date: 20240926
  Receipt Date: 20240926
  Transmission Date: 20241017
  Serious: Yes (Hospitalization, Other)
  Sender: MERCK
  Company Number: None

PATIENT
  Age: 70 Year
  Sex: Male
  Weight: 59 kg

DRUGS (1)
  1. KEYTRUDA [Suspect]
     Active Substance: PEMBROLIZUMAB
     Indication: Bronchial carcinoma
     Dosage: 200MGX1/21 DAY CYCLE
     Route: 042
     Dates: start: 20240408, end: 20240521

REACTIONS (1)
  - Immune-mediated cholestasis [Recovering/Resolving]

NARRATIVE: CASE EVENT DATE: 20240510
